FAERS Safety Report 15786204 (Version 1)
Quarter: 2019Q1

REPORT INFORMATION
  Report Type: Other
  Country: US (occurrence: US)
  Receive Date: 20190103
  Receipt Date: 20190103
  Transmission Date: 20190417
  Serious: No
  Sender: FDA-Public Use
  Company Number: US-NEOPHARMA INC-000003

PATIENT
  Age: 73 Year
  Sex: Male
  Weight: 88 kg

DRUGS (6)
  1. PIMAVANSERIN [Concomitant]
     Active Substance: PIMAVANSERIN
     Indication: HALLUCINATION
     Dosage: 34 MG, ONCE DAILY
     Route: 048
     Dates: start: 201809, end: 201809
  2. BUSPIRONE [Concomitant]
     Active Substance: BUSPIRONE HYDROCHLORIDE
     Indication: PRODUCT USED FOR UNKNOWN INDICATION
     Route: 065
  3. PIMAVANSERIN [Concomitant]
     Active Substance: PIMAVANSERIN
     Indication: HALLUCINATION
     Dosage: 34 MG, ONCE DAILY
     Route: 048
     Dates: start: 201809, end: 201809
  4. QUETIAPINE. [Concomitant]
     Active Substance: QUETIAPINE
     Indication: PRODUCT USED FOR UNKNOWN INDICATION
     Route: 065
  5. AUGMENTIN [Suspect]
     Active Substance: AMOXICILLIN\CLAVULANATE POTASSIUM
     Indication: EAR INFECTION
     Route: 065
     Dates: start: 2018
  6. PIMAVANSERIN [Concomitant]
     Active Substance: PIMAVANSERIN
     Indication: HALLUCINATION
     Dosage: 34 MG, ONCE DAILY
     Route: 048
     Dates: start: 201809

REACTIONS (2)
  - Flushing [Not Recovered/Not Resolved]
  - Restlessness [Not Recovered/Not Resolved]

NARRATIVE: CASE EVENT DATE: 2018
